FAERS Safety Report 10568271 (Version 1)
Quarter: 2014Q4

REPORT INFORMATION
  Report Type: Spontaneous
  Country: KR (occurrence: KR)
  Receive Date: 20141106
  Receipt Date: 20141106
  Transmission Date: 20150529
  Serious: Yes (Hospitalization)
  Sender: FDA-Public Use
  Company Number: PHHY2014KR143452

PATIENT

DRUGS (1)
  1. PARACETAMOL [Suspect]
     Active Substance: ACETAMINOPHEN
     Indication: PRODUCT USED FOR UNKNOWN INDICATION
     Route: 065

REACTIONS (7)
  - Skin hyperpigmentation [Unknown]
  - Macule [Recovered/Resolved]
  - Blister [Recovered/Resolved]
  - Drug eruption [Recovered/Resolved]
  - Erythema [Recovered/Resolved]
  - Dermatitis bullous [Recovered/Resolved]
  - Skin reaction [Recovered/Resolved]
